FAERS Safety Report 10539459 (Version 2)
Quarter: 2014Q4

REPORT INFORMATION
  Report Type: Other
  Country: CA (occurrence: CA)
  Receive Date: 20141023
  Receipt Date: 20141023
  Transmission Date: 20150529
  Serious: Yes (Hospitalization, Other)
  Sender: FDA-Public Use
  Company Number: CA-GSKPPD-2014GSK022519

PATIENT
  Age: 52 Year
  Sex: Female

DRUGS (4)
  1. ADALAT [Concomitant]
     Active Substance: NIFEDIPINE
  2. HYDROCHLOROTHIAZIDE. [Concomitant]
     Active Substance: HYDROCHLOROTHIAZIDE
  3. AVANDIA [Suspect]
     Active Substance: ROSIGLITAZONE MALEATE
     Indication: DIABETES MELLITUS
     Dosage: DATE OF AVANDIA USE COULD NOT BE CONFIRMED IN RECORDS REVIEWED.
     Route: 048
  4. VASOTEC [Concomitant]
     Active Substance: ENALAPRIL MALEATE

REACTIONS (2)
  - Acute myocardial infarction [Recovered/Resolved]
  - Acute coronary syndrome [None]

NARRATIVE: CASE EVENT DATE: 20100320
